FAERS Safety Report 7355588-8 (Version None)
Quarter: 2011Q1

REPORT INFORMATION
  Report Type: 
  Country: None (occurrence: None)
  Receive Date: 20110316
  Receipt Date: 20110309
  Transmission Date: 20110831
  Serious: No
  Sender: FDA-Public Use
  Company Number: B0702083A

PATIENT
  Sex: Female

DRUGS (18)
  1. PAXIL [Suspect]
     Indication: DEPRESSION
     Dosage: 10MG PER DAY
     Route: 048
     Dates: start: 20110217, end: 20110222
  2. MEIACT [Concomitant]
     Route: 048
  3. GASPORT [Concomitant]
     Route: 048
  4. MAGMITT [Concomitant]
     Route: 048
  5. POTASSIUM CANRENOATE [Concomitant]
     Route: 042
  6. PIPERACILLIN SODIUM [Concomitant]
     Route: 042
  7. HANP [Concomitant]
     Route: 042
  8. PLETAL [Concomitant]
     Route: 048
  9. LOXOPROFEN [Concomitant]
     Route: 048
  10. SOLDEM [Concomitant]
     Route: 042
  11. DOPAMINE HYDROCHLORIDE [Concomitant]
  12. GLUCOSE [Concomitant]
     Route: 042
  13. ARICEPT [Concomitant]
  14. WARFARIN [Concomitant]
     Route: 048
  15. SOLULACT [Concomitant]
     Route: 042
  16. BROTIZOLAM [Concomitant]
     Route: 048
  17. TULOBUTEROL [Concomitant]
  18. FUROSEMIDE [Concomitant]
     Route: 042

REACTIONS (1)
  - TREMOR [None]
